FAERS Safety Report 7372912-0 (Version None)
Quarter: 2011Q1

REPORT INFORMATION
  Report Type: 
  Country: None (occurrence: None)
  Receive Date: 20110324
  Receipt Date: 20110321
  Transmission Date: 20110831
  Serious: Yes (Hospitalization, Other)
  Sender: FDA-Public Use
  Company Number: CH-PFIZER INC-2011061951

PATIENT
  Age: 67 Year
  Sex: Male

DRUGS (3)
  1. ATORVASTATIN CALCIUM [Suspect]
     Dosage: UNK
  2. FLUCONAZOLE [Interacting]
     Dosage: UNK
  3. AMIODARONE [Interacting]
     Dosage: UNK

REACTIONS (7)
  - STAPHYLOCOCCAL INFECTION [None]
  - RHABDOMYOLYSIS [None]
  - MYOPATHY [None]
  - HYPERPHOSPHATAEMIA [None]
  - HYPOCALCAEMIA [None]
  - GOUT [None]
  - RENAL FAILURE ACUTE [None]
